FAERS Safety Report 8196519-0 (Version None)
Quarter: 2012Q1

REPORT INFORMATION
  Report Type: 
  Country: None (occurrence: None)
  Receive Date: 20120307
  Receipt Date: 20120227
  Transmission Date: 20120608
  Serious: Yes (Hospitalization)
  Sender: FDA-Public Use
  Company Number: 2012ST000215

PATIENT
  Age: 72 Year
  Sex: Male

DRUGS (2)
  1. MATULANE [Suspect]
     Indication: PRODUCT USED FOR UNKNOWN INDICATION
     Dosage: 150,200 MG, QOD, PO
     Route: 048
     Dates: start: 20120125
  2. MATULANE [Suspect]
     Indication: PRODUCT USED FOR UNKNOWN INDICATION
     Dosage: 150,200 MG, QOD, PO
     Route: 048
     Dates: start: 20120125

REACTIONS (1)
  - BLOOD SODIUM DECREASED [None]
